FAERS Safety Report 23666271 (Version 1)
Quarter: 2024Q1

REPORT INFORMATION
  Report Type: Spontaneous
  Country: CA (occurrence: US)
  Receive Date: 20240324
  Receipt Date: 20240324
  Transmission Date: 20240410
  Serious: No
  Sender: FDA-Public Use
  Company Number: None

PATIENT
  Age: 68 Year
  Sex: Female

DRUGS (10)
  1. NICOTINE [Suspect]
     Active Substance: NICOTINE
     Indication: Smoking cessation therapy
     Dosage: 14MG, 1 PATCH EVERY 24 HOURS AT THE TOP OF HER AR
     Route: 062
     Dates: start: 20231218
  2. BIFIDOBACTERIUM SPP. [Concomitant]
     Active Substance: BIFIDOBACTERIUM SPP.
     Indication: Abdominal discomfort
  3. MAGNESIUM GLYCINATE [Concomitant]
     Active Substance: MAGNESIUM GLYCINATE
     Indication: Supplementation therapy
     Dosage: MULTIVITAMIN
  4. PROPAFENONE [Concomitant]
     Active Substance: PROPAFENONE
     Indication: Tachycardia
     Dosage: 150 MILLIGRAM
  5. ALBUTEROL [Concomitant]
     Active Substance: ALBUTEROL
     Indication: Oxygen consumption decreased
     Dosage: USE 2 PUFFS FOUR TIMES A DAY ON 27-?DEC-2023 OR PROBABLY 28-DEC-2023,
     Route: 055
  6. HYDROCHLOROTHIAZIDE\SPIRONOLACTONE [Concomitant]
     Active Substance: HYDROCHLOROTHIAZIDE\SPIRONOLACTONE
     Indication: Blood pressure measurement
     Dosage: HCTZ 25/25 A QUARTER OF THE
  7. DILTIAZEM HYDROCHLORIDE [Concomitant]
     Active Substance: DILTIAZEM HYDROCHLORIDE
     Indication: Blood pressure measurement
  8. CHOLECALCIFEROL [Concomitant]
     Active Substance: CHOLECALCIFEROL
     Indication: Supplementation therapy
     Dosage: MULTIVITAMIN
  9. ALBUTEROL [Concomitant]
     Active Substance: ALBUTEROL
     Indication: Oxygen consumption decreased
     Dosage: 3 PUFFS TWO TIMES A DAY FOR ABOUT A WEEK
     Route: 055
     Dates: start: 20240109
  10. ALBUTEROL [Concomitant]
     Active Substance: ALBUTEROL
     Indication: Oxygen consumption decreased
     Dosage: 2 PUFFS TWO TIMES A DAY
     Route: 055
     Dates: start: 20240115

REACTIONS (3)
  - Feeling jittery [Not Recovered/Not Resolved]
  - Hypoaesthesia [Not Recovered/Not Resolved]
  - Hyperhidrosis [Not Recovered/Not Resolved]

NARRATIVE: CASE EVENT DATE: 20231218
